FAERS Safety Report 25527866 (Version 2)
Quarter: 2025Q3

REPORT INFORMATION
  Report Type: Report from Study
  Country: CA (occurrence: CA)
  Receive Date: 20250708
  Receipt Date: 20250717
  Transmission Date: 20251021
  Serious: Yes (Other)
  Sender: SANOFI AVENTIS
  Company Number: CA-SA-2025SA190762

PATIENT
  Age: 85 Year
  Sex: Female

DRUGS (13)
  1. DUPILUMAB [Suspect]
     Active Substance: DUPILUMAB
     Indication: Asthma
     Route: 058
     Dates: start: 20250703, end: 20250703
  2. RIVAROXABAN [Concomitant]
     Active Substance: RIVAROXABAN
     Route: 048
     Dates: start: 20250501
  3. ZOPICLONE [Concomitant]
     Active Substance: ZOPICLONE
     Route: 048
  4. ATROVENT [Concomitant]
     Active Substance: IPRATROPIUM BROMIDE
  5. ACCEL HYOSCINE [Concomitant]
     Route: 048
  6. SENNOSIDES [Concomitant]
     Active Substance: SENNOSIDES
     Route: 048
  7. ACETAMINOPHEN\TRAMADOL [Concomitant]
     Active Substance: ACETAMINOPHEN\TRAMADOL
     Route: 048
     Dates: start: 20250122
  8. CYANOCOBALAMIN [Concomitant]
     Active Substance: CYANOCOBALAMIN
     Route: 048
  9. CALCIUM [Concomitant]
     Active Substance: CALCIUM
  10. ACETAMINOPHEN [Concomitant]
     Active Substance: ACETAMINOPHEN
     Route: 048
     Dates: start: 20250601
  11. ACETAMINOPHEN\CAFFEINE\CODEINE [Concomitant]
     Active Substance: ACETAMINOPHEN\CAFFEINE\CODEINE
     Route: 048
     Dates: start: 20250103
  12. VITAMIN D3 [Concomitant]
     Active Substance: CHOLECALCIFEROL
  13. VENTOLIN HFA [Concomitant]
     Active Substance: ALBUTEROL SULFATE
     Route: 048

REACTIONS (3)
  - Chest discomfort [Recovered/Resolved]
  - Dyspnoea [Recovered/Resolved]
  - Oropharyngeal discomfort [Recovered/Resolved]

NARRATIVE: CASE EVENT DATE: 20250703
